FAERS Safety Report 15857657 (Version 2)
Quarter: 2019Q2

REPORT INFORMATION
  Report Type: Spontaneous
  Country: US (occurrence: US)
  Receive Date: 20190123
  Receipt Date: 20190523
  Transmission Date: 20190711
  Serious: Yes (Hospitalization, Other)
  Sender: FDA-Public Use
  Company Number: US-ABBVIE-19K-163-2632344-00

PATIENT
  Age: 79 Year
  Sex: Female
  Weight: 49.03 kg

DRUGS (8)
  1. VENCLEXTA [Suspect]
     Active Substance: VENETOCLAX
     Dosage: TOTAL OF 7 DAYS ON 50 MG DAILY DOSE
     Route: 048
     Dates: start: 201812, end: 201812
  2. VENCLEXTA [Suspect]
     Active Substance: VENETOCLAX
     Route: 048
     Dates: start: 20181119
  3. VENCLEXTA [Suspect]
     Active Substance: VENETOCLAX
     Dosage: TOTAL OF 7 DAYS ON 100 MG DAILY DOSE
     Route: 048
     Dates: start: 201812, end: 201812
  4. VENCLEXTA [Suspect]
     Active Substance: VENETOCLAX
     Indication: CHRONIC LYMPHOCYTIC LEUKAEMIA
     Dosage: TOTAL OF 7 DAYS ON 20 MG DAILY DOSE
     Route: 048
     Dates: start: 20181108
  5. XARELTO [Concomitant]
     Active Substance: RIVAROXABAN
     Indication: DEEP VEIN THROMBOSIS
  6. PRILOSEC [Concomitant]
     Active Substance: OMEPRAZOLE MAGNESIUM
     Indication: PRODUCT USED FOR UNKNOWN INDICATION
  7. VENCLEXTA [Suspect]
     Active Substance: VENETOCLAX
     Route: 048
     Dates: start: 20190507
  8. VENCLEXTA [Suspect]
     Active Substance: VENETOCLAX
     Route: 048
     Dates: start: 201812, end: 20190506

REACTIONS (3)
  - Splenomegaly [Recovered/Resolved]
  - Tumour lysis syndrome [Unknown]
  - Abdominal discomfort [Unknown]

NARRATIVE: CASE EVENT DATE: 20181111
